FAERS Safety Report 18682136 (Version 1)
Quarter: 2020Q4

REPORT INFORMATION
  Report Type: Spontaneous
  Country: US (occurrence: US)
  Receive Date: 20201229
  Receipt Date: 20201229
  Transmission Date: 20210114
  Serious: No
  Sender: FDA-Public Use
  Company Number: US-JNJFOC-20201250814

PATIENT
  Age: 42 Year
  Sex: Male

DRUGS (1)
  1. SIMPONI [Suspect]
     Active Substance: GOLIMUMAB
     Indication: PSORIATIC ARTHROPATHY
     Route: 058
     Dates: start: 20200310

REACTIONS (3)
  - Musculoskeletal stiffness [Unknown]
  - Product dose omission issue [Unknown]
  - Arthralgia [Unknown]

NARRATIVE: CASE EVENT DATE: 20201221
